FAERS Safety Report 17426409 (Version 3)
Quarter: 2020Q1

REPORT INFORMATION
  Report Type: Spontaneous
  Country: FR (occurrence: FR)
  Receive Date: 20200217
  Receipt Date: 20200313
  Transmission Date: 20200409
  Serious: Yes (Death, Other)
  Sender: FDA-Public Use
  Company Number: FR-PFIZER INC-2020066286

PATIENT
  Age: 88 Year
  Sex: Female
  Weight: 77 kg

DRUGS (1)
  1. VYNDAQEL [Suspect]
     Active Substance: TAFAMIDIS MEGLUMINE
     Dosage: 20 MG, DAILY
     Dates: end: 20200201

REACTIONS (2)
  - Death [Fatal]
  - Cardiac failure [Unknown]

NARRATIVE: CASE EVENT DATE: 20200201
